FAERS Safety Report 6257691-2 (Version None)
Quarter: 2009Q3

REPORT INFORMATION
  Report Type: 
  Country: None (occurrence: None)
  Receive Date: 20090706
  Receipt Date: 20090624
  Transmission Date: 20100115
  Serious: Yes (Other)
  Sender: FDA-Public Use
  Company Number: US-AVENTIS-200915169US

PATIENT
  Sex: Female
  Weight: 81.81 kg

DRUGS (10)
  1. LANTUS [Suspect]
     Indication: TYPE 2 DIABETES MELLITUS
     Dosage: DOSE: 1-14 UNITS
     Route: 058
  2. OPTICLIK (INSULIN INJECTION PEN) [Suspect]
     Indication: TYPE 2 DIABETES MELLITUS
  3. BYETTA [Concomitant]
     Indication: DIABETES MELLITUS
     Dosage: DOSE: UNK
  4. COREG [Concomitant]
  5. COREG [Concomitant]
     Indication: HYPERTENSION
  6. PLAVIX [Concomitant]
  7. PLAVIX [Concomitant]
     Indication: HYPERTENSION
  8. LASIX [Concomitant]
     Indication: HYPERTENSION
  9. WELLBUTRIN [Concomitant]
     Indication: DEPRESSION
  10. APIDRA [Concomitant]
     Dosage: DOSE: SLIDING SCALE

REACTIONS (1)
  - CATARACT [None]
